FAERS Safety Report 12464237 (Version 1)
Quarter: 2016Q2

REPORT INFORMATION
  Report Type: Spontaneous
  Country: GB (occurrence: GB)
  Receive Date: 20160614
  Receipt Date: 20160614
  Transmission Date: 20160815
  Serious: Yes (Other)
  Sender: FDA-Public Use
  Company Number: GB-TEVA-666590ACC

PATIENT
  Age: 69 Year
  Sex: Male
  Weight: 138 kg

DRUGS (17)
  1. APIDRA [Concomitant]
     Active Substance: INSULIN GLULISINE
  2. BETAHISTINE [Concomitant]
     Active Substance: BETAHISTINE
  3. LANTUS [Concomitant]
     Active Substance: INSULIN GLARGINE
  4. DIGOXIN. [Concomitant]
     Active Substance: DIGOXIN
  5. FUROSEMIDE. [Concomitant]
     Active Substance: FUROSEMIDE
  6. PRAVASTATIN [Concomitant]
     Active Substance: PRAVASTATIN\PRAVASTATIN SODIUM
  7. ATENOLOL. [Concomitant]
     Active Substance: ATENOLOL
  8. DOXAZOSIN [Concomitant]
     Active Substance: DOXAZOSIN\DOXAZOSIN MESYLATE
  9. MIRCERA [Suspect]
     Active Substance: METHOXY POLYETHYLENE GLYCOL-EPOETIN BETA
     Indication: CHRONIC KIDNEY DISEASE
     Route: 058
     Dates: start: 20160513
  10. GABAPENTIN. [Concomitant]
     Active Substance: GABAPENTIN
  11. WARFARIN [Suspect]
     Active Substance: WARFARIN
  12. QUINAPRIL. [Concomitant]
     Active Substance: QUINAPRIL
  13. SPIRONOLACTONE. [Concomitant]
     Active Substance: SPIRONOLACTONE
  14. ALFACALCIDOL [Concomitant]
     Active Substance: ALFACALCIDOL
  15. DOMPERIDONE [Concomitant]
     Active Substance: DOMPERIDONE
  16. OMEPRAZOLE. [Concomitant]
     Active Substance: OMEPRAZOLE
  17. FERROUS SULFATE. [Concomitant]
     Active Substance: FERROUS SULFATE

REACTIONS (2)
  - International normalised ratio increased [Unknown]
  - Potentiating drug interaction [Unknown]
